FAERS Safety Report 4501942-9 (Version None)
Quarter: 2004Q4

REPORT INFORMATION
  Report Type: 
  Country: None (occurrence: None)
  Receive Date: 20041109
  Receipt Date: 20041025
  Transmission Date: 20050328
  Serious: Yes (Hospitalization, Other)
  Sender: FDA-Public Use
  Company Number: 2004240872FR

PATIENT
  Age: 38 Year
  Sex: Female

DRUGS (2)
  1. SOLU-MEDROL [Suspect]
     Dosage: 500 MG/KG, QD
  2. KABI GLOBULIN(IMMUNOGLOBULIN HUMAN NORMAL) SOLUTION, STERILE [Suspect]
     Dosage: 2000 MG/KG, QD/1000 MG/KG QD

REACTIONS (10)
  - BLADDER DISORDER [None]
  - CEREBELLAR ATAXIA [None]
  - CYSTITIS [None]
  - DEEP VEIN THROMBOSIS [None]
  - HYPERPROTEINAEMIA [None]
  - INTESTINAL FUNCTIONAL DISORDER [None]
  - LOSS OF PROPRIOCEPTION [None]
  - OEDEMA PERIPHERAL [None]
  - PAIN IN EXTREMITY [None]
  - QUADRIPARESIS [None]
